FAERS Safety Report 7494770-6 (Version None)
Quarter: 2011Q2

REPORT INFORMATION
  Report Type: 
  Country: None (occurrence: None)
  Receive Date: 20110520
  Receipt Date: 20110511
  Transmission Date: 20111010
  Serious: Yes (Hospitalization)
  Sender: FDA-Public Use
  Company Number: A0785694A

PATIENT
  Age: 62 Year
  Sex: Female
  Weight: 89.5 kg

DRUGS (3)
  1. GLUCOTROL [Concomitant]
     Dates: end: 20040601
  2. AVANDIA [Suspect]
     Indication: DIABETES MELLITUS
     Dosage: 4MG PER DAY
     Route: 048
     Dates: start: 20010907, end: 20040601
  3. GLUCOPHAGE [Concomitant]
     Dates: end: 20040601

REACTIONS (4)
  - CORONARY ARTERY DISEASE [None]
  - ARTERIOSPASM CORONARY [None]
  - MYOCARDIAL INFARCTION [None]
  - MYOCARDIAL ISCHAEMIA [None]
